FAERS Safety Report 6332569-4 (Version None)
Quarter: 2009Q3

REPORT INFORMATION
  Report Type: 
  Country: None (occurrence: None)
  Receive Date: 20090828
  Receipt Date: 20090820
  Transmission Date: 20100115
  Serious: Yes (Other)
  Sender: FDA-Public Use
  Company Number: DE-PURDUE-DEU_2008_0004895

PATIENT
  Sex: Female
  Weight: 60 kg

DRUGS (4)
  1. TARGIN 20/10 MG RETARDTABLETTEN [Suspect]
     Indication: PAIN
     Dosage: 20 MG, TID
     Route: 048
     Dates: start: 20070822
  2. LYRICA [Concomitant]
  3. ARCOXIA [Concomitant]
  4. CLOMIPRAMINE HCL [Concomitant]

REACTIONS (2)
  - ENAMEL ANOMALY [None]
  - TOOTH INJURY [None]
